FAERS Safety Report 24940219 (Version 1)
Quarter: 2025Q1

REPORT INFORMATION
  Report Type: Spontaneous
  Country: US (occurrence: US)
  Receive Date: 20250207
  Receipt Date: 20250207
  Transmission Date: 20250409
  Serious: No
  Sender: MSN LABORATORIES PRIVATE LIMITED
  Company Number: US-MSNLABS-2025MSNSPO00214

PATIENT

DRUGS (2)
  1. LEVETIRACETAM [Suspect]
     Active Substance: LEVETIRACETAM
     Indication: Craniocerebral injury
     Dosage: 500 MG DAILY
     Route: 065
  2. LEVETIRACETAM [Suspect]
     Active Substance: LEVETIRACETAM
     Indication: Parkinson^s disease

REACTIONS (7)
  - Therapeutic product effect variable [Unknown]
  - Overdose [Unknown]
  - Product substitution issue [Unknown]
  - Anxiety [Recovered/Resolved]
  - Irritability [Recovered/Resolved]
  - Dizziness [Recovering/Resolving]
  - Asthenia [Unknown]
